FAERS Safety Report 12631109 (Version 2)
Quarter: 2016Q3

REPORT INFORMATION
  Report Type: Spontaneous
  Country: US (occurrence: US)
  Receive Date: 20160808
  Receipt Date: 20160808
  Transmission Date: 20161109
  Serious: No
  Sender: FDA-Public Use
  Company Number: US-BEH-2015052304

PATIENT
  Sex: Female
  Weight: 72 kg

DRUGS (28)
  1. HIZENTRA [Suspect]
     Active Substance: HUMAN IMMUNOGLOBULIN G
     Dosage: 4 GM 20 ML VIAL
     Route: 058
  2. SYNTHROID [Concomitant]
     Active Substance: LEVOTHYROXINE SODIUM
  3. PREVACID [Concomitant]
     Active Substance: LANSOPRAZOLE
  4. EPIPEN [Concomitant]
     Active Substance: EPINEPHRINE
     Indication: ANAPHYLACTIC REACTION
  5. PREDNISONE. [Concomitant]
     Active Substance: PREDNISONE
  6. XOLAIR [Concomitant]
     Active Substance: OMALIZUMAB
  7. SINGULAIR [Concomitant]
     Active Substance: MONTELUKAST SODIUM
  8. LOVENOX [Concomitant]
     Active Substance: ENOXAPARIN SODIUM
  9. LMX [Concomitant]
     Active Substance: LIDOCAINE
  10. LEVALBUTEROL. [Concomitant]
     Active Substance: LEVALBUTEROL
  11. OXYGEN. [Concomitant]
     Active Substance: OXYGEN
  12. PROBIOTIC [Concomitant]
     Active Substance: PROBIOTICS NOS
  13. PROAIR HFA [Concomitant]
     Active Substance: ALBUTEROL SULFATE
  14. HIZENTRA [Suspect]
     Active Substance: HUMAN IMMUNOGLOBULIN G
     Indication: IMMUNODEFICIENCY COMMON VARIABLE
     Dosage: 2 GM 10 ML VIAL
     Route: 058
  15. FLEXERIL [Concomitant]
     Active Substance: CYCLOBENZAPRINE HYDROCHLORIDE
  16. OCUVITE [Concomitant]
     Active Substance: VITAMINS
  17. NASONEX [Concomitant]
     Active Substance: MOMETASONE FUROATE
  18. TYLENOL [Concomitant]
     Active Substance: ACETAMINOPHEN
  19. ZOLOFT [Concomitant]
     Active Substance: SERTRALINE HYDROCHLORIDE
  20. CLARITIN [Concomitant]
     Active Substance: LORATADINE
  21. TRAMADOL. [Concomitant]
     Active Substance: TRAMADOL
  22. NITROGLYCERIN. [Concomitant]
     Active Substance: NITROGLYCERIN
  23. DIPHENHYDRAMINE. [Concomitant]
     Active Substance: DIPHENHYDRAMINE
  24. AUGMENTIN [Concomitant]
     Active Substance: AMOXICILLIN\CLAVULANATE POTASSIUM
  25. ATENOLOL. [Concomitant]
     Active Substance: ATENOLOL
  26. ALVESCO [Concomitant]
     Active Substance: CICLESONIDE
  27. ALBUTEROL. [Concomitant]
     Active Substance: ALBUTEROL
  28. XYZAL [Concomitant]
     Active Substance: LEVOCETIRIZINE DIHYDROCHLORIDE

REACTIONS (2)
  - Infusion site swelling [Unknown]
  - Infusion site erythema [Unknown]
